FAERS Safety Report 9643440 (Version 2)
Quarter: 2013Q4

REPORT INFORMATION
  Report Type: Report from Study
  Country: DE (occurrence: DE)
  Receive Date: 20131024
  Receipt Date: 20131202
  Transmission Date: 20140711
  Serious: Yes (Death, Life-Threatening, Hospitalization)
  Sender: FDA-Public Use
  Company Number: DE-ELI_LILLY_AND_COMPANY-DE201310006072

PATIENT
  Age: 61 Year
  Sex: Female
  Weight: 73 kg

DRUGS (9)
  1. PLACEBO [Suspect]
     Indication: PANCREATIC CARCINOMA
     Dosage: UNK
     Dates: start: 20130917, end: 20131018
  2. PLACEBO [Suspect]
     Dosage: UNK
     Dates: start: 20131023
  3. GEMCITABINE HYDROCHLORIDE [Suspect]
     Indication: PANCREATIC CARCINOMA
     Dosage: 1000 MG/M2, CYCLICAL
     Route: 042
     Dates: start: 20130923, end: 20131015
  4. PANTOPRAZOL [Concomitant]
     Dosage: 40 MG, UNK
     Dates: start: 201309, end: 20131019
  5. SIMVASTATIN [Concomitant]
     Dosage: 20 MG, UNK
     Dates: start: 1992, end: 20131019
  6. CARVEDILOL [Concomitant]
     Indication: HYPERTENSION
     Dosage: 12.5 MG, UNK
     Dates: start: 2010
  7. LORAZEPAM [Concomitant]
     Dosage: 1.0 MG, UNK
     Dates: start: 201310
  8. ENOXAPARIN [Concomitant]
     Indication: PULMONARY EMBOLISM
     Dosage: 0.8 MG, UNK
     Dates: start: 20130905
  9. NOVAMINSULFON [Concomitant]
     Indication: PAIN
     Dosage: UNK

REACTIONS (2)
  - Peritonitis [Fatal]
  - Urinary tract infection [Unknown]
